FAERS Safety Report 15141517 (Version 1)
Quarter: 2018Q3

REPORT INFORMATION
  Report Type: Spontaneous
  Country: US (occurrence: US)
  Receive Date: 20180713
  Receipt Date: 20180713
  Transmission Date: 20181010
  Serious: No
  Sender: FDA-Public Use
  Company Number: US-ASTELLAS-2018US012391

PATIENT
  Age: 76 Year
  Sex: Female

DRUGS (2)
  1. ALFALFA                            /01255601/ [Concomitant]
     Indication: HYPERSENSITIVITY
     Dosage: UNK UNK, UNKNOWN FREQ.
     Route: 065
  2. MYRBETRIQ [Suspect]
     Active Substance: MIRABEGRON
     Indication: URINARY TRACT DISORDER
     Route: 065
     Dates: start: 20180306

REACTIONS (7)
  - Abdominal distension [Unknown]
  - Nasal oedema [Unknown]
  - Dry mouth [Unknown]
  - Nasal congestion [Unknown]
  - Gait disturbance [Unknown]
  - Blood pressure increased [Unknown]
  - Head discomfort [Unknown]

NARRATIVE: CASE EVENT DATE: 20180307
